FAERS Safety Report 7605618-0 (Version None)
Quarter: 2011Q3

REPORT INFORMATION
  Report Type: 
  Country: None (occurrence: None)
  Receive Date: 20110713
  Receipt Date: 20110705
  Transmission Date: 20111222
  Serious: Yes (Other)
  Sender: FDA-Public Use
  Company Number: IN-JNJFOC-20110609157

PATIENT
  Age: 38 Year
  Sex: Male

DRUGS (2)
  1. ITRACONAZOLE [Suspect]
     Indication: PRODUCT USED FOR UNKNOWN INDICATION
     Route: 065
  2. ITRACONAZOLE [Suspect]
     Route: 065

REACTIONS (2)
  - ISCHAEMIA [None]
  - PALPITATIONS [None]
